FAERS Safety Report 5471664-9 (Version None)
Quarter: 2007Q3

REPORT INFORMATION
  Report Type: 
  Country: None (occurrence: None)
  Receive Date: 20070928
  Receipt Date: 20070315
  Transmission Date: 20080115
  Serious: No
  Sender: FDA-Public Use
  Company Number: US-BRISTOL-MYERS SQUIBB COMPANY-13715255

PATIENT
  Age: 42 Year
  Sex: Female

DRUGS (7)
  1. DEFINITY [Suspect]
     Indication: STRESS ECHOCARDIOGRAM
     Dosage: 3CC OF A DILUTED BOLUS OF DEFINITY
     Route: 040
  2. ADVIL LIQUI-GELS [Concomitant]
  3. ASPIRIN [Concomitant]
  4. AVANDAMET [Concomitant]
  5. FOLIC ACID [Concomitant]
  6. LOVASTATIN [Concomitant]
  7. PLAVIX [Concomitant]

REACTIONS (3)
  - ARTHRALGIA [None]
  - MUSCLE SPASMS [None]
  - NECK PAIN [None]
